FAERS Safety Report 4307939-6 (Version None)
Quarter: 2004Q1

REPORT INFORMATION
  Report Type: 
  Country: None (occurrence: None)
  Receive Date: 20040301
  Receipt Date: 20030115
  Transmission Date: 20041129
  Serious: No
  Sender: FDA-Public Use
  Company Number: US-BRISTOL-MYERS SQUIBB COMPANY-12160081

PATIENT
  Age: 48 Year
  Sex: Female

DRUGS (7)
  1. GLUCOPHAGE [Suspect]
     Indication: DIABETES MELLITUS
     Route: 048
  2. LIPITOR [Concomitant]
  3. CELEBREX [Concomitant]
  4. COLACE [Concomitant]
  5. PREVACID [Concomitant]
  6. PENICILLIN [Concomitant]
  7. TYLENOL W/ CODEINE NO. 3 [Concomitant]

REACTIONS (3)
  - DENTAL CARIES [None]
  - DRY SKIN [None]
  - ONYCHORRHEXIS [None]
